FAERS Safety Report 4881334-3 (Version None)
Quarter: 2005Q4

REPORT INFORMATION
  Report Type: 
  Country: None (occurrence: None)
  Receive Date: 20051212
  Receipt Date: 20050906
  Transmission Date: 20060501
  Serious: Yes (Other)
  Sender: FDA-Public Use
  Company Number: 2005-01910

PATIENT
  Age: 80 Year
  Sex: Male

DRUGS (1)
  1. VELCADE [Suspect]
     Dosage: 1.30 MG/M2
     Dates: start: 20050701

REACTIONS (2)
  - LEUKOPENIA [None]
  - OEDEMA PERIPHERAL [None]
